FAERS Safety Report 9264240 (Version 4)
Quarter: 2014Q2

REPORT INFORMATION
  Report Type: Spontaneous
  Country: US (occurrence: US)
  Receive Date: 20130430
  Receipt Date: 20140604
  Transmission Date: 20141212
  Serious: No
  Sender: FDA-Public Use
  Company Number: US-009507513-1304USA016947

PATIENT
  Sex: Male
  Weight: 82.86 kg

DRUGS (2)
  1. PROPECIA [Suspect]
     Indication: ANDROGENETIC ALOPECIA
     Dosage: 1 MG, UNK
     Route: 048
     Dates: start: 200608, end: 20070222
  2. ROGAINE [Concomitant]
     Indication: ANDROGENETIC ALOPECIA

REACTIONS (12)
  - Anxiety [Unknown]
  - Dermatitis exfoliative [Unknown]
  - Actinic elastosis [Unknown]
  - Cardiac murmur [Unknown]
  - Fatigue [Unknown]
  - Hyperlipidaemia [Unknown]
  - Mitral valve incompetence [Unknown]
  - Sexual dysfunction [Not Recovered/Not Resolved]
  - Erectile dysfunction [Not Recovered/Not Resolved]
  - Depression [Unknown]
  - Loss of libido [Unknown]
  - Drug ineffective [Unknown]
